FAERS Safety Report 6757926-3 (Version None)
Quarter: 2010Q2

REPORT INFORMATION
  Report Type: 
  Country: None (occurrence: None)
  Receive Date: 20100607
  Receipt Date: 20100531
  Transmission Date: 20101027
  Serious: Yes (Other)
  Sender: FDA-Public Use
  Company Number: IT-BRISTOL-MYERS SQUIBB COMPANY-15133010

PATIENT
  Age: 78 Year
  Sex: Female

DRUGS (6)
  1. TAXOL [Suspect]
     Indication: BREAST CANCER
     Route: 042
     Dates: start: 20100323
  2. CARBOPLATIN [Suspect]
     Indication: BREAST CANCER
     Dosage: 1 DF= 10MG/ML FOR INFUSION. 170 MG CYCLIC ADMINISTARION
     Dates: start: 20100323, end: 20100419
  3. TRIMETON [Concomitant]
     Indication: PROPHYLAXIS
     Dosage: 1DF=10 MG/ML SOLUTION, DOSAGE 250 MG
     Route: 030
     Dates: start: 20100323, end: 20100419
  4. SOLU-CORTEF [Concomitant]
     Indication: PROPHYLAXIS
     Dosage: 1 DF= 250MG/2ML POWDER INJECTABLE SOLUTION 50 MG DOSE
     Route: 042
     Dates: start: 20100323, end: 20100419
  5. ZANTAC [Concomitant]
     Indication: PROPHYLAXIS
     Dosage: 1 DF= 50MG/5ML SOLUTION AND 50 MG DOSE
     Route: 042
     Dates: start: 20100323, end: 20100419
  6. NAVOBAN [Concomitant]
     Indication: PROPHYLAXIS OF NAUSEA AND VOMITING
     Dosage: 1 DF= 5MG/5ML. ORALLY 5MG
     Route: 042
     Dates: start: 20100323, end: 20100419

REACTIONS (2)
  - ATRIAL FIBRILLATION [None]
  - BUNDLE BRANCH BLOCK LEFT [None]
